FAERS Safety Report 8282712-5 (Version None)
Quarter: 2012Q2

REPORT INFORMATION
  Report Type: 
  Country: None (occurrence: None)
  Receive Date: 20120413
  Receipt Date: 20120404
  Transmission Date: 20120825
  Serious: Yes (Death)
  Sender: FDA-Public Use
  Company Number: US-PFIZER INC-2011313892

PATIENT
  Age: 34 Year
  Sex: Female

DRUGS (7)
  1. OXYCODONE HCL [Suspect]
  2. MEPROBAMATE [Suspect]
  3. ALPRAZOLAM [Suspect]
  4. LIDOCAINE HYDROCHLORIDE [Suspect]
  5. FENTANYL [Suspect]
     Route: 062
  6. BUPRENORPHINE HCL AND NALOXONE HCL [Suspect]
     Route: 060
  7. CARISOPRODOL [Suspect]

REACTIONS (3)
  - CARDIAC ARREST [None]
  - DEATH [None]
  - RESPIRATORY ARREST [None]
